FAERS Safety Report 7411719-2 (Version None)
Quarter: 2011Q2

REPORT INFORMATION
  Report Type: 
  Country: None (occurrence: None)
  Receive Date: 20110413
  Receipt Date: 20101124
  Transmission Date: 20111010
  Serious: No
  Sender: FDA-Public Use
  Company Number: US-BRISTOL-MYERS SQUIBB COMPANY-15405921

PATIENT
  Age: 56 Year
  Sex: Male

DRUGS (6)
  1. KAPIDEX [Concomitant]
     Indication: GASTROOESOPHAGEAL REFLUX DISEASE
  2. MINOCYCLINE [Concomitant]
  3. ERBITUX [Suspect]
     Indication: HEAD AND NECK CANCER
     Dosage: 480MG
     Route: 042
     Dates: start: 20101001
  4. HYDROCODONE [Concomitant]
  5. ALLEGRA [Concomitant]
     Indication: HYPERSENSITIVITY
  6. FAMVIR [Concomitant]

REACTIONS (1)
  - PYREXIA [None]
